FAERS Safety Report 14328836 (Version 2)
Quarter: 2017Q4

REPORT INFORMATION
  Report Type: Spontaneous
  Country: GB (occurrence: GB)
  Receive Date: 20171227
  Receipt Date: 20171228
  Transmission Date: 20180321
  Serious: Yes (Disabling)
  Sender: FDA-Public Use
  Company Number: GB-ABBVIE-17S-167-2201956-00

PATIENT
  Sex: Female

DRUGS (1)
  1. LUPRON [Suspect]
     Active Substance: LEUPROLIDE ACETATE
     Indication: PRODUCT USED FOR UNKNOWN INDICATION
     Route: 050

REACTIONS (16)
  - Altered visual depth perception [Unknown]
  - Visual impairment [Unknown]
  - Functional gastrointestinal disorder [Unknown]
  - Osteoporosis [Unknown]
  - Abnormal weight gain [Unknown]
  - Loss of control of legs [Unknown]
  - Hypothalamo-pituitary disorder [Unknown]
  - Vomiting [Unknown]
  - Abnormal loss of weight [Unknown]
  - Bone pain [Unknown]
  - Arthralgia [Unknown]
  - Dysphemia [Unknown]
  - Sudden onset of sleep [Unknown]
  - Suicidal ideation [Unknown]
  - Muscle atrophy [Unknown]
  - Swelling [Unknown]
